FAERS Safety Report 7464164-8 (Version None)
Quarter: 2011Q2

REPORT INFORMATION
  Report Type: 
  Country: None (occurrence: None)
  Receive Date: 20110506
  Receipt Date: 20110503
  Transmission Date: 20111010
  Serious: Yes (Other)
  Sender: FDA-Public Use
  Company Number: FR-MERCK-1009FRA00088

PATIENT
  Age: 70 Year
  Sex: Female
  Weight: 65 kg

DRUGS (10)
  1. HYDROCHLOROTHIAZIDE [Suspect]
     Indication: NEPHROGENIC DIABETES INSIPIDUS
     Route: 048
     Dates: start: 20100825, end: 20100831
  2. REPAGLINIDE [Concomitant]
     Route: 065
     Dates: start: 20100825, end: 20100826
  3. LORAZEPAM [Concomitant]
     Route: 065
  4. HYDROCHLOROTHIAZIDE [Suspect]
     Route: 048
     Dates: start: 20100915, end: 20110405
  5. CITALOPRAM HYDROBROMIDE [Concomitant]
     Route: 065
  6. JANUVIA [Suspect]
     Indication: TYPE 2 DIABETES MELLITUS
     Route: 048
     Dates: start: 20100827, end: 20100827
  7. HYDROCHLOROTHIAZIDE [Suspect]
     Route: 048
     Dates: start: 20110415
  8. HYDROCHLOROTHIAZIDE [Suspect]
     Route: 048
     Dates: start: 20100831, end: 20100906
  9. AMLODIPINE BESYLATE [Concomitant]
     Route: 065
  10. DIVALPROEX SODIUM [Concomitant]
     Indication: BIPOLAR I DISORDER
     Route: 065

REACTIONS (5)
  - HYPOKALAEMIA [None]
  - DRUG ADMINISTRATION ERROR [None]
  - TREMOR [None]
  - ECHOLALIA [None]
  - DEMENTIA [None]
